FAERS Safety Report 5828133-3 (Version None)
Quarter: 2008Q3

REPORT INFORMATION
  Report Type: 
  Country: None (occurrence: None)
  Receive Date: 20080731
  Receipt Date: 20080707
  Transmission Date: 20090109
  Serious: Yes (Other)
  Sender: FDA-Public Use
  Company Number: US-BAYER-200812994BCC

PATIENT
  Age: 91 Year
  Sex: Female
  Weight: 59 kg

DRUGS (8)
  1. ALEVE [Suspect]
     Indication: ARTHRALGIA
     Dosage: TOTAL DAILY DOSE: 440 MG  UNIT DOSE: 220 MG
     Route: 048
     Dates: end: 20080703
  2. MACRODANTIN [Concomitant]
  3. DIOVAN [Concomitant]
  4. PLETAL [Concomitant]
  5. ULTRAMIDOL [Concomitant]
  6. HYDROXYZINE [Concomitant]
  7. DARVOCET [Concomitant]
  8. CENTRUM [Concomitant]

REACTIONS (1)
  - BLOOD PRESSURE DECREASED [None]
